FAERS Safety Report 5021133-5 (Version None)
Quarter: 2006Q2

REPORT INFORMATION
  Report Type: 
  Country: None (occurrence: None)
  Receive Date: 20060608
  Receipt Date: 20060526
  Transmission Date: 20061013
  Serious: Yes (Hospitalization)
  Sender: FDA-Public Use
  Company Number: 2006061253

PATIENT
  Age: 40 Year
  Sex: Female

DRUGS (5)
  1. NICORETTE [Suspect]
     Indication: SMOKING CESSATION THERAPY
     Dosage: 15MG UNKNOWN
     Route: 045
     Dates: start: 20060330, end: 20060423
  2. RANITIDINE [Suspect]
     Dosage: 150MG TWICE PER DAY
     Route: 048
     Dates: start: 20060324, end: 20060423
  3. NICOTINE [Concomitant]
     Dosage: 15MG PER DAY
     Route: 062
  4. FOLIC ACID [Concomitant]
     Indication: PREGNANCY
     Dosage: 5MG PER DAY
     Route: 048
  5. NORFLOXACIN [Concomitant]
     Indication: INFECTION
     Dosage: 400MG PER DAY
     Route: 065
     Dates: end: 20060401

REACTIONS (3)
  - ERYTHEMA MULTIFORME [None]
  - PHARYNGEAL OEDEMA [None]
  - SWOLLEN TONGUE [None]
